FAERS Safety Report 23210542 (Version 4)
Quarter: 2024Q2

REPORT INFORMATION
  Report Type: Spontaneous
  Country: FR (occurrence: None)
  Receive Date: 20231121
  Receipt Date: 20240424
  Transmission Date: 20240715
  Serious: Yes (Hospitalization, Other)
  Sender: FDA-Public Use
  Company Number: 2023A264002

PATIENT
  Age: 4 Day
  Sex: Female

DRUGS (1)
  1. BEYFORTUS [Suspect]
     Active Substance: NIRSEVIMAB-ALIP
     Dosage: TOTAL, 1X ONCE/SINGLE ADMINISTRATION

REACTIONS (6)
  - Dyspnoea [Unknown]
  - Neonatal hypoxia [Recovered/Resolved]
  - Apnoea [Unknown]
  - Neonatal respiratory distress [Recovered/Resolved]
  - Oxygen saturation decreased [Recovered/Resolved]
  - Tachypnoea [Unknown]
